FAERS Safety Report 14323673 (Version 1)
Quarter: 2017Q4

REPORT INFORMATION
  Report Type: Spontaneous
  Country: EG (occurrence: EG)
  Receive Date: 20171226
  Receipt Date: 20171226
  Transmission Date: 20180321
  Serious: Yes (Death)
  Sender: FDA-Public Use
  Company Number: EG-ROCHE-2045133

PATIENT
  Age: 70 Year
  Sex: Male
  Weight: 65 kg

DRUGS (4)
  1. ACTILYSE [Suspect]
     Active Substance: ALTEPLASE
     Indication: ACUTE MYOCARDIAL INFARCTION
     Dosage: 15 ML AS BOLUS THEN 50 MG OVER 30
     Route: 042
  2. CLEXANE [Concomitant]
     Active Substance: ENOXAPARIN SODIUM
     Indication: PRODUCT USED FOR UNKNOWN INDICATION
  3. CORDARONE [Concomitant]
     Active Substance: AMIODARONE HYDROCHLORIDE
     Indication: PRODUCT USED FOR UNKNOWN INDICATION
  4. ADRENALINE [Concomitant]
     Active Substance: EPINEPHRINE
     Indication: PRODUCT USED FOR UNKNOWN INDICATION

REACTIONS (1)
  - Acute myocardial infarction [Fatal]

NARRATIVE: CASE EVENT DATE: 20171203
